FAERS Safety Report 8581296-1 (Version None)
Quarter: 2012Q3

REPORT INFORMATION
  Report Type: 
  Country: None (occurrence: None)
  Receive Date: 20120809
  Receipt Date: 20120807
  Transmission Date: 20120928
  Serious: Yes (Hospitalization)
  Sender: FDA-Public Use
  Company Number: PHHO2009JP15381

PATIENT
  Sex: Male
  Weight: 67 kg

DRUGS (24)
  1. ENALAPRIL MALEATE [Suspect]
     Indication: CARDIAC FAILURE
     Dosage: UNK
     Route: 048
     Dates: start: 20100122
  2. BISOPROLOL FUMARATE [Concomitant]
  3. ALLOPURINOL [Concomitant]
  4. BUFFERIN [Concomitant]
  5. FERROUS CITRATE [Concomitant]
     Indication: IRON DEFICIENCY ANAEMIA
     Dosage: 100 MG, UNK
     Route: 048
     Dates: start: 20120601
  6. PRAVASTATIN [Concomitant]
  7. DIGOXIN [Concomitant]
  8. KALGUT [Concomitant]
  9. ALISKIREN [Suspect]
     Indication: CARDIAC FAILURE
     Dosage: UNK
     Route: 048
     Dates: start: 20100304
  10. ALDACTONE [Concomitant]
     Indication: CARDIAC FAILURE CHRONIC
     Dosage: 25 MG, UNK
     Route: 048
     Dates: start: 20120503
  11. LASIX [Concomitant]
     Indication: CARDIAC FAILURE CHRONIC
     Dosage: 20 MG, UNK
     Route: 048
     Dates: start: 20090319
  12. BLINDED ALISKIREN [Suspect]
     Indication: CARDIAC FAILURE
     Dosage: CODE NOT BROKEN
     Route: 048
     Dates: start: 20100304
  13. BLINDED NO TREATMENT RECEIVED [Suspect]
     Indication: CARDIAC FAILURE
     Dosage: CODE NOT BROKEN
     Route: 048
     Dates: start: 20100304
  14. NITROGLYCERIN [Concomitant]
  15. LENDORMIN [Concomitant]
     Indication: INSOMNIA
     Dosage: UNK
     Route: 048
     Dates: start: 20091020
  16. LASIX [Concomitant]
     Dosage: 80 MG, UNK
     Route: 048
  17. ENALAPRIL MALEATE [Suspect]
     Indication: CARDIAC FAILURE
     Dosage: CODE NOT BROKEN
     Route: 048
     Dates: start: 20100304
  18. PLAVIX [Concomitant]
  19. LASIX [Concomitant]
     Dosage: 40 MG, UNK
     Route: 048
     Dates: start: 20120503
  20. ENALAPRIL MALEATE [Concomitant]
  21. NITROGLYCERIN [Concomitant]
  22. LANSOPRAZOLE [Concomitant]
  23. MAGMITT [Concomitant]
     Indication: CONSTIPATION
     Dosage: 750 MG, UNK
     Route: 048
     Dates: start: 20100401
  24. TAMSULOSIN HCL [Concomitant]

REACTIONS (7)
  - PLEURAL EFFUSION [None]
  - RESTLESSNESS [None]
  - OEDEMA PERIPHERAL [None]
  - DYSPNOEA [None]
  - BRAIN NATRIURETIC PEPTIDE INCREASED [None]
  - CARDIAC FAILURE [None]
  - INSOMNIA [None]
